FAERS Safety Report 4847410-6 (Version None)
Quarter: 2005Q4

REPORT INFORMATION
  Report Type: 
  Country: None (occurrence: None)
  Receive Date: 20051205
  Receipt Date: 20051128
  Transmission Date: 20060501
  Serious: Yes (Hospitalization)
  Sender: FDA-Public Use
  Company Number: 24019

PATIENT
  Age: 61 Year
  Sex: Male
  Weight: 79.3795 kg

DRUGS (10)
  1. NIASPAN [Suspect]
     Indication: BLOOD CHOLESTEROL INCREASED
     Dosage: 1000 MG QHS PO
     Route: 048
  2. PRAVACHOL [Concomitant]
  3. ZETIA [Concomitant]
  4. WELCHOL [Concomitant]
  5. ALTACE [Concomitant]
  6. TOPROL-XL [Concomitant]
  7. FOLBIC [Concomitant]
  8. ALLOPURINOL [Concomitant]
  9. PLAVIX [Concomitant]
  10. ENTERIC-COATED BABY ASPIRIN [Concomitant]

REACTIONS (6)
  - CONTUSION [None]
  - FALL [None]
  - HEADACHE [None]
  - HOT FLUSH [None]
  - LOSS OF CONSCIOUSNESS [None]
  - SYNCOPE [None]
